FAERS Safety Report 9443958 (Version 1)
Quarter: 2013Q3

REPORT INFORMATION
  Report Type: Spontaneous
  Country: US (occurrence: US)
  Receive Date: 20130807
  Receipt Date: 20130807
  Transmission Date: 20140515
  Serious: No
  Sender: FDA-Public Use
  Company Number: US-BIOGENIDEC-2009BI031632

PATIENT
  Age: 44 Year
  Sex: Female

DRUGS (2)
  1. AVONEX [Suspect]
     Indication: MULTIPLE SCLEROSIS
     Route: 030
     Dates: start: 20091001
  2. AVONEX [Suspect]
     Indication: MULTIPLE SCLEROSIS
     Route: 030
     Dates: start: 20130212

REACTIONS (7)
  - Hypoaesthesia [Unknown]
  - Musculoskeletal disorder [Unknown]
  - Diabetic neuropathy [Unknown]
  - Influenza like illness [Not Recovered/Not Resolved]
  - Asthenia [Not Recovered/Not Resolved]
  - Pain in extremity [Unknown]
  - Arthralgia [Unknown]
